FAERS Safety Report 14169115 (Version 3)
Quarter: 2017Q4

REPORT INFORMATION
  Report Type: Report from Study
  Country: US (occurrence: US)
  Receive Date: 20171107
  Receipt Date: 20171128
  Transmission Date: 20180321
  Serious: Yes (Hospitalization, Other)
  Sender: FDA-Public Use
  Company Number: US-ACTELION-A-NJ2016-147639

PATIENT
  Age: 4 Year
  Sex: Female
  Weight: 19.48 kg

DRUGS (8)
  1. REMODULIN [Suspect]
     Active Substance: TREPROSTINIL
     Dosage: 91 NG/KG, PER MIN
     Route: 058
     Dates: start: 20161118
  2. TRACLEER [Suspect]
     Active Substance: BOSENTAN
     Dosage: 31.25 MG, BID IN 6.25 ML WATER
     Route: 048
  3. ADCIRCA [Concomitant]
     Active Substance: TADALAFIL
     Dosage: 20 MG, QD
  4. ADCIRCA [Concomitant]
     Active Substance: TADALAFIL
     Dosage: 18 MG, QD (3.6 ML OF 5/MG/ML SOLUTION)
     Route: 065
  5. TRACLEER [Suspect]
     Active Substance: BOSENTAN
     Dosage: 62.5 MG, BID
     Route: 048
     Dates: start: 20171013
  6. REMODULIN [Suspect]
     Active Substance: TREPROSTINIL
     Indication: PULMONARY ARTERIAL HYPERTENSION
     Dosage: 85 NG/KG, PER MIN
     Route: 058
  7. TRACLEER [Suspect]
     Active Substance: BOSENTAN
     Indication: PULMONARY ARTERIAL HYPERTENSION
     Dosage: 62.5 MG, BID
     Route: 048
     Dates: start: 20161128
  8. REMODULIN [Suspect]
     Active Substance: TREPROSTINIL
     Dosage: 106 NG/KG, PER MIN
     Route: 058

REACTIONS (25)
  - Infusion site erythema [Unknown]
  - Seizure [Recovered/Resolved]
  - Peripheral swelling [Unknown]
  - Erythema [Unknown]
  - Alanine aminotransferase increased [Unknown]
  - Yellow skin [Recovered/Resolved]
  - Pallor [Recovered/Resolved]
  - Vomiting [Recovered/Resolved]
  - Decreased appetite [Recovered/Resolved]
  - Blood pressure decreased [Unknown]
  - Infusion site swelling [Unknown]
  - Infusion site pain [Unknown]
  - Headache [Recovered/Resolved]
  - Chest pain [Recovered/Resolved]
  - Flushing [Unknown]
  - Dyspnoea [Unknown]
  - Induration [Unknown]
  - Weight increased [Unknown]
  - Irregular breathing [Unknown]
  - Cough [Unknown]
  - Nausea [Recovered/Resolved]
  - Fatigue [Unknown]
  - Dyspnoea exertional [Unknown]
  - Skin exfoliation [Unknown]
  - Syncope [Recovered/Resolved]

NARRATIVE: CASE EVENT DATE: 20161128
